FAERS Safety Report 18242709 (Version 1)
Quarter: 2020Q3

REPORT INFORMATION
  Report Type: Spontaneous
  Country: FR (occurrence: FR)
  Receive Date: 20200908
  Receipt Date: 20200908
  Transmission Date: 20201103
  Serious: Yes (Death, Life-Threatening, Hospitalization)
  Sender: FDA-Public Use
  Company Number: FR-UCBSA-2020034417

PATIENT
  Age: 57 Year
  Sex: Male
  Weight: 85 kg

DRUGS (8)
  1. DIPRIVAN [Suspect]
     Active Substance: PROPOFOL
     Indication: LIGHT ANAESTHESIA
     Dosage: 200 MILLIGRAM, HOURLY
     Route: 042
     Dates: start: 20200804, end: 20200805
  2. MABTHERA [Suspect]
     Active Substance: RITUXIMAB
     Indication: B-CELL LYMPHOMA
     Dosage: MABTHERA SOLUTION FOR PERFUSION TO BE DILUTED (570 MG DAILY)
     Route: 042
     Dates: start: 20200804, end: 20200804
  3. TAZOCILLINE [Suspect]
     Active Substance: PIPERACILLIN SODIUM\TAZOBACTAM SODIUM
     Indication: PNEUMONIA ASPIRATION
     Dosage: TAZOCILLINE  SOLUTION FOR PERFUSION POWDER, 12 GRAM DAILY
     Route: 042
     Dates: start: 20200804, end: 20200805
  4. ETOPOPHOS [Concomitant]
     Active Substance: ETOPOSIDE PHOSPHATE
     Indication: PRODUCT USED FOR UNKNOWN INDICATION
     Dosage: ETOPOPHOS LYOPHILISATE FOR PARENTERAL USE 180 MG
     Route: 042
     Dates: start: 20200805, end: 20200805
  5. SOLU?MEDROL [Suspect]
     Active Substance: METHYLPREDNISOLONE SODIUM SUCCINATE
     Indication: VASOGENIC CEREBRAL OEDEMA
     Dosage: 40 MG/2ML, LYOPHILISATE AND SOLUTION FOR PARENTERAL USE (80 MG DALY)
     Route: 042
     Dates: start: 20200804, end: 20200806
  6. LOVENOX [Concomitant]
     Active Substance: ENOXAPARIN SODIUM
     Indication: PRODUCT USED FOR UNKNOWN INDICATION
     Dosage: 4000 INTERNATIONAL UNIT DAILY
     Route: 042
     Dates: start: 20200727, end: 20200806
  7. KEPPRA [Suspect]
     Active Substance: LEVETIRACETAM
     Indication: EPILEPSY
     Dosage: KEPPRA 100 MG/ML, SOLUTION FOR PERFUSION TO BE DILUTED (4 GRAM, FREQUENCY NOT REPORTED)
     Route: 042
     Dates: start: 20200804, end: 20200806
  8. METHOTREXATE. [Suspect]
     Active Substance: METHOTREXATE
     Indication: B-CELL LYMPHOMA
     Dosage: 5400 MG DAILY
     Route: 042
     Dates: start: 20200804, end: 20200804

REACTIONS (3)
  - Neurological decompensation [Fatal]
  - Condition aggravated [Fatal]
  - Acute kidney injury [Fatal]

NARRATIVE: CASE EVENT DATE: 20200805
